FAERS Safety Report 11209731 (Version 1)
Quarter: 2015Q2

REPORT INFORMATION
  Report Type: Spontaneous
  Country: US (occurrence: US)
  Receive Date: 20150622
  Receipt Date: 20150622
  Transmission Date: 20150821
  Serious: Yes (Hospitalization)
  Sender: FDA-Public Use
  Company Number: US-MPIJNJ-2012-01909

PATIENT
  Sex: Male
  Weight: 71.66 kg

DRUGS (2)
  1. VELCADE [Suspect]
     Active Substance: BORTEZOMIB
     Dosage: 2.4 MG, CYCLIC
     Route: 042
     Dates: start: 201112
  2. VELCADE [Suspect]
     Active Substance: BORTEZOMIB
     Indication: PLASMA CELL MYELOMA
     Dosage: UNK
     Route: 042
     Dates: start: 200912, end: 201101

REACTIONS (5)
  - Dehydration [Recovered/Resolved]
  - Abdominal discomfort [Not Recovered/Not Resolved]
  - Small intestinal obstruction [Recovered/Resolved]
  - Back pain [Unknown]
  - Constipation [Recovered/Resolved]
